FAERS Safety Report 13081056 (Version 3)
Quarter: 2017Q1

REPORT INFORMATION
  Report Type: Spontaneous
  Country: US (occurrence: US)
  Receive Date: 20170103
  Receipt Date: 20170214
  Transmission Date: 20170428
  Serious: No
  Sender: FDA-Public Use
  Company Number: US-PFIZER INC-2016598543

PATIENT
  Age: 70 Year
  Sex: Female
  Weight: 84.81 kg

DRUGS (12)
  1. MILK THISTLE [Concomitant]
     Active Substance: MILK THISTLE
     Indication: HEPATIC CIRRHOSIS
     Dosage: UNK
  2. TORASEMIDE [Concomitant]
     Active Substance: TORSEMIDE
     Indication: HEPATIC CIRRHOSIS
     Dosage: 20 MG, 1X/DAY
  3. OXYCODONE [Concomitant]
     Active Substance: OXYCODONE
     Indication: ARTHRITIS
     Dosage: 20 MG, AS NEEDED
  4. GABAPENTIN. [Suspect]
     Active Substance: GABAPENTIN
     Indication: DIABETIC NEUROPATHY
     Dosage: 300 MG, 1X/DAY
     Route: 048
     Dates: start: 201504
  5. VENLAFAXINE HYDROCHLORIDE. [Concomitant]
     Active Substance: VENLAFAXINE HYDROCHLORIDE
     Dosage: UNK
  6. SPIRONOLACTONE. [Concomitant]
     Active Substance: SPIRONOLACTONE
     Indication: HEPATIC CIRRHOSIS
     Dosage: 50 MG, 2X/DAY
  7. TORSEMIDE. [Concomitant]
     Active Substance: TORSEMIDE
     Dosage: UNK
  8. GABAPENTIN. [Suspect]
     Active Substance: GABAPENTIN
     Indication: FIBROMYALGIA
     Dosage: 300 MG, 2X/DAY
  9. GABAPENTIN. [Suspect]
     Active Substance: GABAPENTIN
     Indication: NEUROPATHY PERIPHERAL
     Dosage: 300 MG, UNK
     Dates: start: 2015
  10. LACTULOSE. [Concomitant]
     Active Substance: LACTULOSE
     Indication: PAIN
     Dosage: 20 G, UNK
     Route: 048
  11. LEVOTHYROXINE. [Concomitant]
     Active Substance: LEVOTHYROXINE
     Indication: THYROID DISORDER
     Dosage: 0.50 UG, UNK
  12. EFFEXOR XR [Concomitant]
     Active Substance: VENLAFAXINE HYDROCHLORIDE
     Indication: DEPRESSION
     Dosage: 200 MG, 1X/DAY (2 CAPSULES OF 100MG)

REACTIONS (5)
  - Intentional product use issue [Unknown]
  - Condition aggravated [Unknown]
  - Pain [Unknown]
  - Muscle spasms [Unknown]
  - Drug ineffective for unapproved indication [Unknown]
